FAERS Safety Report 7206579-9 (Version None)
Quarter: 2011Q1

REPORT INFORMATION
  Report Type: 
  Country: None (occurrence: None)
  Receive Date: 20110103
  Receipt Date: 20101229
  Transmission Date: 20110831
  Serious: No
  Sender: FDA-Public Use
  Company Number: US-JNJFOC-20101209248

PATIENT
  Sex: Male
  Weight: 90.72 kg

DRUGS (3)
  1. FENTANYL-100 [Suspect]
     Indication: BACK PAIN
     Route: 062
  2. TERAZOSIN HCL [Concomitant]
     Indication: PROSTATIC DISORDER
  3. LISINOPRIL [Concomitant]
     Indication: HYPERTENSION
     Route: 048

REACTIONS (2)
  - INAPPROPRIATE SCHEDULE OF DRUG ADMINISTRATION [None]
  - PAIN [None]
